FAERS Safety Report 6105365-0 (Version None)
Quarter: 2009Q1

REPORT INFORMATION
  Report Type: 
  Country: None (occurrence: None)
  Receive Date: 20090306
  Receipt Date: 20090216
  Transmission Date: 20090719
  Serious: Yes (Other)
  Sender: FDA-Public Use
  Company Number: GB-PFIZER INC-2008069974

PATIENT

DRUGS (1)
  1. CHAMPIX [Suspect]
     Indication: SMOKING CESSATION THERAPY
     Route: 048
     Dates: start: 20080721, end: 20080727

REACTIONS (5)
  - ALTERED VISUAL DEPTH PERCEPTION [None]
  - ANXIETY [None]
  - CONFUSIONAL STATE [None]
  - FEELING ABNORMAL [None]
  - VESTIBULAR DISORDER [None]
